FAERS Safety Report 8991760 (Version 1)
Quarter: 2012Q4

REPORT INFORMATION
  Report Type: Report from Study
  Country: BR (occurrence: BR)
  Receive Date: 20121231
  Receipt Date: 20121231
  Transmission Date: 20130627
  Serious: Yes (Other)
  Sender: FDA-Public Use
  Company Number: BR-ABBOTT-12P-020-1028221-00

PATIENT
  Age: 67 Year
  Sex: Female
  Weight: 75 kg

DRUGS (4)
  1. HUMIRA [Suspect]
     Indication: RHEUMATOID ARTHRITIS
     Route: 058
     Dates: start: 20120101, end: 20120814
  2. HUMIRA [Suspect]
  3. PRESS PLUS [Concomitant]
     Indication: HYPERTENSION
     Route: 048
     Dates: start: 201206
  4. OMEPRAZOLE [Concomitant]
     Indication: GASTRIC DISORDER
     Dosage: 1 TABLET DAILY, In fasting
     Route: 048
     Dates: start: 201206

REACTIONS (6)
  - Arthropathy [Recovered/Resolved]
  - Pain [Unknown]
  - Phobia [Unknown]
  - Phobia [Unknown]
  - Claustrophobia [Unknown]
  - Peripheral vascular disorder [Unknown]
